FAERS Safety Report 18472992 (Version 3)
Quarter: 2020Q4

REPORT INFORMATION
  Report Type: Spontaneous
  Country: TR (occurrence: TR)
  Receive Date: 20201106
  Receipt Date: 20201215
  Transmission Date: 20210114
  Serious: Yes (Hospitalization, Other)
  Sender: FDA-Public Use
  Company Number: TR-STRIDES ARCOLAB LIMITED-2020SP013281

PATIENT
  Age: 45 Year
  Sex: Male

DRUGS (2)
  1. METHOTREXATE. [Suspect]
     Active Substance: METHOTREXATE
     Indication: PEMPHIGUS
     Dosage: 15 MILLIGRAM, ONCE A WEEK
     Route: 065
  2. PREDNISOLONE. [Suspect]
     Active Substance: PREDNISOLONE
     Indication: PEMPHIGUS
     Dosage: 80 MILLIGRAM, PER DAY
     Route: 065

REACTIONS (20)
  - Pyrexia [Recovered/Resolved]
  - Large intestinal ulcer [Recovered/Resolved]
  - Arthralgia [Recovered/Resolved]
  - Terminal ileitis [Recovered/Resolved]
  - Gait inability [Recovered/Resolved]
  - Lung infiltration [Recovered/Resolved]
  - Septic pulmonary embolism [Recovered/Resolved]
  - Pain in extremity [Recovered/Resolved]
  - Pyuria [Recovered/Resolved]
  - Osteomyelitis salmonella [Recovered/Resolved]
  - Hepatomegaly [Recovered/Resolved]
  - Dysuria [Recovered/Resolved]
  - Cough [Recovered/Resolved]
  - Diarrhoea [Recovered/Resolved]
  - Bone infarction [Recovered/Resolved]
  - Pneumonia salmonella [Recovered/Resolved]
  - Abdominal pain upper [Recovered/Resolved]
  - Dyspnoea [Recovered/Resolved]
  - Bacterial colitis [Recovered/Resolved]
  - Typhoid fever [Recovered/Resolved]
